FAERS Safety Report 10203628 (Version 5)
Quarter: 2014Q3

REPORT INFORMATION
  Report Type: Spontaneous
  Country: IT (occurrence: None)
  Receive Date: 20140523
  Receipt Date: 20140722
  Transmission Date: 20150326
  Serious: Yes (Other)
  Sender: FDA-Public Use
  Company Number: AUR-APL-2014-05967

PATIENT
  Age: 65 Year
  Sex: Female

DRUGS (4)
  1. APLACTIN [Suspect]
     Active Substance: PRAVASTATIN SODIUM
     Indication: HYPERCHOLESTEROLAEMIA
     Route: 048
     Dates: start: 20140221, end: 20140322
  2. APLACTIN [Suspect]
     Active Substance: PRAVASTATIN SODIUM
     Indication: DYSLIPIDAEMIA
     Route: 048
     Dates: start: 20140221, end: 20140322
  3. SIMVASTATINA [Suspect]
     Active Substance: SIMVASTATIN
     Indication: DYSLIPIDAEMIA
     Route: 048
     Dates: start: 20131101, end: 20140220
  4. SIMVASTATINA [Suspect]
     Active Substance: SIMVASTATIN
     Indication: HYPERCHOLESTEROLAEMIA
     Route: 048
     Dates: start: 20131101, end: 20140220

REACTIONS (6)
  - Dyspnoea [None]
  - Anxiety [None]
  - Insomnia [None]
  - Tachyarrhythmia [None]
  - Agitation [None]
  - Myalgia [None]

NARRATIVE: CASE EVENT DATE: 20131201
